FAERS Safety Report 5533660-2 (Version None)
Quarter: 2007Q4

REPORT INFORMATION
  Report Type: 
  Country: None (occurrence: None)
  Receive Date: 20071204
  Receipt Date: 20071122
  Transmission Date: 20080405
  Serious: Yes (Death, Hospitalization)
  Sender: FDA-Public Use
  Company Number: DK-GENENTECH-252039

PATIENT
  Sex: Female

DRUGS (6)
  1. MABTHERA [Suspect]
     Indication: RHEUMATOID ARTHRITIS
     Dosage: 1000 MG, UNK
     Route: 042
     Dates: start: 20070524, end: 20070820
  2. ENBREL [Suspect]
     Indication: RHEUMATOID ARTHRITIS
     Route: 058
     Dates: start: 20060105, end: 20060222
  3. HUMIRA [Suspect]
     Indication: RHEUMATOID ARTHRITIS
     Dosage: UNK, UNK
     Route: 058
     Dates: start: 20050810, end: 20051013
  4. REMICADE [Suspect]
     Indication: RHEUMATOID ARTHRITIS
     Dosage: 300 MG, Q6W
     Route: 042
     Dates: start: 20060323, end: 20070322
  5. METHOTREXATE [Concomitant]
     Indication: DRUG USE FOR UNKNOWN INDICATION
  6. SALAZOPYRIN [Concomitant]
     Indication: DRUG USE FOR UNKNOWN INDICATION

REACTIONS (1)
  - NEOPLASM MALIGNANT [None]
